FAERS Safety Report 8151708-6 (Version None)
Quarter: 2012Q1

REPORT INFORMATION
  Report Type: 
  Country: None (occurrence: None)
  Receive Date: 20120221
  Receipt Date: 20120207
  Transmission Date: 20120608
  Serious: Yes (Other)
  Sender: FDA-Public Use
  Company Number: FR-AMGEN-FRACT2012009618

PATIENT
  Age: 69 Year
  Sex: Female

DRUGS (3)
  1. ETANERCEPT [Suspect]
     Indication: RHEUMATOID ARTHRITIS
     Dosage: UNK
     Route: 065
  2. PREDNISONE [Concomitant]
     Dosage: 15 MG, 1X/DAY
  3. PREDNISONE [Concomitant]
     Dosage: 7 MG/DAY

REACTIONS (5)
  - IRIDOCYCLITIS [None]
  - LYMPHADENOPATHY MEDIASTINAL [None]
  - ERYTHEMA NODOSUM [None]
  - PULMONARY GRANULOMA [None]
  - GRANULOMA [None]
